FAERS Safety Report 9824721 (Version 3)
Quarter: 2014Q1

REPORT INFORMATION
  Report Type: Spontaneous
  Country: PL (occurrence: PL)
  Receive Date: 20140117
  Receipt Date: 20140225
  Transmission Date: 20141002
  Serious: Yes (Death, Life-Threatening)
  Sender: FDA-Public Use
  Company Number: PL-ROCHE-1300372

PATIENT
  Age: 62 Year
  Sex: Female
  Weight: 45 kg

DRUGS (9)
  1. ROACTEMRA [Suspect]
     Indication: RHEUMATOID ARTHRITIS
     Route: 042
     Dates: start: 20130731
  2. ROACTEMRA [Suspect]
     Route: 042
     Dates: start: 20130828
  3. ROACTEMRA [Suspect]
     Route: 042
     Dates: start: 20130925, end: 20131105
  4. METYPRED [Suspect]
     Indication: RHEUMATOID ARTHRITIS
     Route: 048
  5. POLPRAZOL [Concomitant]
     Indication: GASTRIC ULCER
     Route: 048
  6. BISOCARD [Concomitant]
     Indication: HYPERTENSION
     Route: 048
  7. DICLAC DUO [Concomitant]
     Indication: RHEUMATOID ARTHRITIS
     Route: 048
  8. DOLTARD (POLAND) [Concomitant]
     Indication: PAIN
     Route: 048
  9. SEVREDOL [Concomitant]

REACTIONS (4)
  - Sepsis [Fatal]
  - Intestinal perforation [Not Recovered/Not Resolved]
  - Gas gangrene [Not Recovered/Not Resolved]
  - Peritonitis [Not Recovered/Not Resolved]
